FAERS Safety Report 12953459 (Version 1)
Quarter: 2016Q4

REPORT INFORMATION
  Report Type: Spontaneous
  Country: CO (occurrence: CO)
  Receive Date: 20161118
  Receipt Date: 20161118
  Transmission Date: 20170207
  Serious: Yes (Other)
  Sender: FDA-Public Use
  Company Number: CO-ASTRAZENECA-2016SF20980

PATIENT
  Sex: Female

DRUGS (9)
  1. CARBOPLATIN. [Suspect]
     Active Substance: CARBOPLATIN
     Indication: BREAST CANCER
     Route: 065
  2. GOSERELINA [Suspect]
     Active Substance: GOSERELIN
     Indication: BREAST CANCER
     Route: 058
  3. FLUORACIL [Suspect]
     Active Substance: FLUOROURACIL
     Indication: BREAST CANCER
     Route: 065
  4. ADRIAMYCIN [Suspect]
     Active Substance: DOXORUBICIN HYDROCHLORIDE
     Indication: BREAST CANCER
     Route: 065
  5. PACLITACEL [Suspect]
     Active Substance: PACLITAXEL
     Indication: BREAST CANCER
     Route: 065
  6. GEMCITABINE [Suspect]
     Active Substance: GEMCITABINE\GEMCITABINE HYDROCHLORIDE
     Indication: BREAST CANCER
     Route: 065
  7. TAMOXIFENO FUNK 20 MG COMPRIMIDOS [Suspect]
     Active Substance: TAMOXIFEN CITRATE
     Route: 048
  8. CYCLOPHOSPHAMIDE. [Suspect]
     Active Substance: CYCLOPHOSPHAMIDE
     Indication: BREAST CANCER
     Route: 065
  9. ZOLEDRONIC ACID. [Suspect]
     Active Substance: ZOLEDRONIC ACID
     Indication: BREAST CANCER
     Route: 065

REACTIONS (2)
  - Malignant neoplasm progression [Unknown]
  - Back pain [Unknown]
